FAERS Safety Report 13213765 (Version 1)
Quarter: 2017Q1

REPORT INFORMATION
  Report Type: Spontaneous
  Country: US (occurrence: US)
  Receive Date: 20170210
  Receipt Date: 20170210
  Transmission Date: 20170428
  Serious: No
  Sender: FDA-Public Use
  Company Number: US-PERRIGO-16US015752

PATIENT
  Age: 53 Year
  Sex: Female

DRUGS (4)
  1. TRETINOIN. [Suspect]
     Active Substance: TRETINOIN
     Indication: ACNE
     Dosage: ONE APPLICATION, QD AT BEDTIME
     Route: 061
     Dates: start: 2015, end: 2016
  2. TRETINOIN. [Concomitant]
     Active Substance: TRETINOIN
     Indication: SKIN WRINKLING
  3. TRETINOIN. [Concomitant]
     Active Substance: TRETINOIN
     Indication: ACNE
     Dosage: UNK, QHS
     Route: 061
  4. TRETINOIN. [Suspect]
     Active Substance: TRETINOIN
     Indication: SKIN WRINKLING
     Dosage: ONE APPLICATION, ONCE WEEKLY
     Route: 061
     Dates: start: 2016

REACTIONS (3)
  - Drug ineffective [Unknown]
  - Off label use [Unknown]
  - Application site irritation [Unknown]

NARRATIVE: CASE EVENT DATE: 2015
